FAERS Safety Report 4332678-5 (Version None)
Quarter: 2004Q1

REPORT INFORMATION
  Report Type: 
  Country: None (occurrence: None)
  Receive Date: 20040330
  Receipt Date: 20040317
  Transmission Date: 20041129
  Serious: Yes (Death)
  Sender: FDA-Public Use
  Company Number: US-JNJFOC-20040203016

PATIENT
  Age: 39 Year
  Sex: Female
  Weight: 90.7194 kg

DRUGS (13)
  1. REMICADE [Suspect]
     Indication: PSORIASIS
     Dosage: 600 MG, 1 IN 8 WEEK, INTRAVENOUS
     Route: 042
     Dates: start: 20031203, end: 20031203
  2. REMICADE [Suspect]
     Indication: PSORIATIC ARTHROPATHY
     Dosage: 600 MG, 1 IN 8 WEEK, INTRAVENOUS
     Route: 042
     Dates: start: 20031203, end: 20031203
  3. REMICADE [Suspect]
     Indication: PSORIASIS
     Dosage: 600 MG, 1 IN 8 WEEK, INTRAVENOUS
     Route: 042
     Dates: start: 20010604
  4. REMICADE [Suspect]
     Indication: PSORIATIC ARTHROPATHY
     Dosage: 600 MG, 1 IN 8 WEEK, INTRAVENOUS
     Route: 042
     Dates: start: 20010604
  5. ARAVA [Suspect]
     Indication: PSORIATIC ARTHROPATHY
     Dosage: 20 MG, 1IN 1 DAY, ORAL
     Route: 048
     Dates: start: 19990528, end: 20031229
  6. DOXEPIN (DOXEPIN) [Concomitant]
  7. OXYCONTIN [Concomitant]
  8. ALBUTEROL (SALBUTAMOL) INHALATION [Concomitant]
  9. FLOVENT [Concomitant]
  10. LORCET-HD [Concomitant]
  11. NEXIUM [Concomitant]
  12. NORVASC [Concomitant]
  13. ELIDEL (OTHER DERMATOLOGICAL PREPARATIONS) CREAM [Concomitant]

REACTIONS (8)
  - ATRIAL PRESSURE INCREASED [None]
  - CARDIAC FAILURE CONGESTIVE [None]
  - DILATATION ATRIAL [None]
  - DYSPNOEA [None]
  - OEDEMA [None]
  - PLEURAL EFFUSION [None]
  - PULMONARY HYPERTENSION [None]
  - TRICUSPID VALVE INCOMPETENCE [None]
